FAERS Safety Report 18415709 (Version 1)
Quarter: 2020Q4

REPORT INFORMATION
  Report Type: Spontaneous
  Country: CA (occurrence: CA)
  Receive Date: 20201022
  Receipt Date: 20201022
  Transmission Date: 20210114
  Serious: Yes (Hospitalization, Other)
  Sender: FDA-Public Use
  Company Number: CA-PFIZER INC-2020406916

PATIENT
  Age: 17 Year
  Sex: Male

DRUGS (4)
  1. VINORELBINE [VINORELBINE TARTRATE] [Suspect]
     Active Substance: VINORELBINE TARTRATE
     Dosage: UNK, CYCLIC
     Route: 042
  2. TORISEL [Suspect]
     Active Substance: TEMSIROLIMUS
     Indication: RHABDOMYOSARCOMA RECURRENT
     Dosage: 1 EVERY 1 WEEKS
  3. PROCYTOX [Suspect]
     Active Substance: CYCLOPHOSPHAMIDE
     Indication: RHABDOMYOSARCOMA RECURRENT
     Dosage: UNK
     Route: 042
  4. VINORELBINE [VINORELBINE TARTRATE] [Suspect]
     Active Substance: VINORELBINE TARTRATE
     Indication: RHABDOMYOSARCOMA RECURRENT
     Dosage: UNK, CYCLIC

REACTIONS (4)
  - Febrile neutropenia [Unknown]
  - Abscess jaw [Unknown]
  - Off label use [Unknown]
  - Product use in unapproved indication [Unknown]
